FAERS Safety Report 4915280-3 (Version None)
Quarter: 2006Q1

REPORT INFORMATION
  Report Type: 
  Country: None (occurrence: None)
  Receive Date: 20060216
  Receipt Date: 20060216
  Transmission Date: 20060701
  Serious: Yes (Hospitalization, Other)
  Sender: FDA-Public Use
  Company Number: None

PATIENT
  Age: 79 Year
  Sex: Female
  Weight: 86.1834 kg

DRUGS (1)
  1. ATIVAN [Suspect]
     Indication: BIPOLAR DISORDER
     Dosage: 2 MG 4 TIMES IN 24 HRS
     Dates: start: 20051006, end: 20051007

REACTIONS (5)
  - ABDOMINAL PAIN UPPER [None]
  - HAEMORRHAGE [None]
  - INJURY [None]
  - MEDICATION ERROR [None]
  - SCAR [None]
